FAERS Safety Report 16758775 (Version 1)
Quarter: 2019Q3

REPORT INFORMATION
  Report Type: Spontaneous
  Country: ES (occurrence: ES)
  Receive Date: 20190830
  Receipt Date: 20190830
  Transmission Date: 20191005
  Serious: Yes (Other)
  Sender: FDA-Public Use
  Company Number: ES-SA-2019SA238675

PATIENT
  Age: 36 Year
  Sex: Female

DRUGS (5)
  1. ALEMTUZUMAB [Suspect]
     Active Substance: ALEMTUZUMAB
     Dosage: 12 MG, QD (3 DOSE CYCLE)
     Dates: start: 2010
  2. ALEMTUZUMAB [Suspect]
     Active Substance: ALEMTUZUMAB
     Indication: MULTIPLE SCLEROSIS
     Dosage: 3 DOSE CYCLE
  3. ALEMTUZUMAB [Suspect]
     Active Substance: ALEMTUZUMAB
     Dosage: 12 MG, QD (5 DOSE CYCLE)
     Dates: start: 2009
  4. ACYCLOVIR [ACICLOVIR] [Concomitant]
     Active Substance: ACYCLOVIR
     Indication: PROPHYLAXIS
     Dosage: UNK
  5. COTRIMOXAZOLE [Concomitant]
     Active Substance: SULFAMETHOXAZOLE\TRIMETHOPRIM
     Indication: PROPHYLAXIS
     Dosage: UNK

REACTIONS (6)
  - Pyrexia [Recovered/Resolved]
  - Asthenia [Recovered/Resolved]
  - Lymphocyte morphology abnormal [Recovered/Resolved]
  - Cytomegalovirus infection [Recovered/Resolved]
  - Cytomegalovirus urinary tract infection [Recovered/Resolved]
  - Lymphopenia [Recovered/Resolved]
